FAERS Safety Report 9563831 (Version 1)
Quarter: 2013Q3

REPORT INFORMATION
  Report Type: Spontaneous
  Country: US (occurrence: None)
  Receive Date: 20130926
  Receipt Date: 20130926
  Transmission Date: 20140515
  Serious: Yes (Hospitalization, Disabling, Other)
  Sender: FDA-Public Use
  Company Number: None

PATIENT
  Age: 23 Year
  Sex: Female
  Weight: 61.24 kg

DRUGS (2)
  1. CIPROFLOXACIN [Suspect]
     Indication: URINARY TRACT INFECTION
     Dosage: 7 PILLS; TWICE DAILY
     Route: 048
     Dates: start: 20130607, end: 20130615
  2. LEVOFLOXACIN [Suspect]
     Dosage: 10 PILLS
     Route: 048

REACTIONS (9)
  - Gait disturbance [None]
  - Therapeutic response decreased [None]
  - Joint swelling [None]
  - Tendon pain [None]
  - Neuropathy peripheral [None]
  - Musculoskeletal pain [None]
  - Pain [None]
  - Arthralgia [None]
  - Pain in extremity [None]
